FAERS Safety Report 4935328-X (Version None)
Quarter: 2006Q1

REPORT INFORMATION
  Report Type: 
  Country: None (occurrence: None)
  Receive Date: 20060302
  Receipt Date: 20060210
  Transmission Date: 20060701
  Serious: Yes (Congenital Anomaly)
  Sender: FDA-Public Use
  Company Number: US200602003732

PATIENT

DRUGS (1)
  1. CYMBALTA [Suspect]
     Dosage: INTRA-UTERINE
     Route: 015
     Dates: start: 20050501, end: 20050601

REACTIONS (3)
  - CONGENITAL ANOMALY [None]
  - DRUG EXPOSURE DURING PREGNANCY [None]
  - HYPOSPADIAS [None]
